FAERS Safety Report 12395852 (Version 4)
Quarter: 2019Q1

REPORT INFORMATION
  Report Type: Spontaneous
  Country: US (occurrence: US)
  Receive Date: 20160523
  Receipt Date: 20190314
  Transmission Date: 20190417
  Serious: No
  Sender: FDA-Public Use
  Company Number: US-LUNDBECK-DKLU2012746

PATIENT
  Sex: Male

DRUGS (6)
  1. NORTHERA [Suspect]
     Active Substance: DROXIDOPA
     Route: 065
     Dates: end: 20190302
  2. NORTHERA [Suspect]
     Active Substance: DROXIDOPA
     Dosage: 200 MG UP TO 600 MG AT DIFFERENT TIMES
     Route: 065
  3. NORTHERA [Suspect]
     Active Substance: DROXIDOPA
     Indication: ORTHOSTATIC HYPOTENSION
     Route: 065
  4. NORTHERA [Suspect]
     Active Substance: DROXIDOPA
     Route: 065
  5. NORTHERA [Suspect]
     Active Substance: DROXIDOPA
     Route: 065
  6. NORTHERA [Suspect]
     Active Substance: DROXIDOPA
     Route: 065
     Dates: end: 20190302

REACTIONS (5)
  - Hyperhidrosis [Recovering/Resolving]
  - Hypertension [Unknown]
  - Blood pressure increased [Unknown]
  - Product dose omission [Recovering/Resolving]
  - Dyspnoea [Recovering/Resolving]
